FAERS Safety Report 10566997 (Version 3)
Quarter: 2014Q4

REPORT INFORMATION
  Report Type: Spontaneous
  Country: JP (occurrence: JP)
  Receive Date: 20141105
  Receipt Date: 20141210
  Transmission Date: 20150529
  Serious: Yes (Hospitalization, Other)
  Sender: FDA-Public Use
  Company Number: JP-PFIZER INC-2014305205

PATIENT
  Age: 23 Year
  Sex: Male

DRUGS (6)
  1. TRIENTINE [Concomitant]
     Active Substance: TRIENTINE
     Indication: HEPATO-LENTICULAR DEGENERATION
  2. CARBAMAZEPINE. [Suspect]
     Active Substance: CARBAMAZEPINE
     Indication: EPILEPSY
     Route: 065
  3. ZINC ACETATE [Concomitant]
     Active Substance: ZINC ACETATE
     Indication: HEPATO-LENTICULAR DEGENERATION
  4. VALPROIC ACID. [Suspect]
     Active Substance: VALPROIC ACID
     Indication: EPILEPSY
     Route: 065
  5. CLONAZEPAM. [Suspect]
     Active Substance: CLONAZEPAM
     Indication: EPILEPSY
     Dosage: UNK
     Route: 065
  6. GABAPEN [Suspect]
     Active Substance: GABAPENTIN
     Indication: EPILEPSY
     Dosage: UNK
     Route: 048

REACTIONS (2)
  - Bone density decreased [Recovered/Resolved]
  - Cervical myelopathy [Recovered/Resolved]
